FAERS Safety Report 8271801-7 (Version None)
Quarter: 2012Q2

REPORT INFORMATION
  Report Type: 
  Country: None (occurrence: None)
  Receive Date: 20120410
  Receipt Date: 20120330
  Transmission Date: 20120825
  Serious: Yes (Hospitalization)
  Sender: FDA-Public Use
  Company Number: FR-ROCHE-1057578

PATIENT
  Age: 50 Year
  Sex: Male

DRUGS (1)
  1. XOLAIR [Suspect]
     Indication: ASTHMA

REACTIONS (3)
  - SPLENIC INFARCTION [None]
  - CARDIAC FAILURE [None]
  - PULMONARY EMBOLISM [None]
